FAERS Safety Report 7437122-7 (Version None)
Quarter: 2011Q2

REPORT INFORMATION
  Report Type: 
  Country: None (occurrence: None)
  Receive Date: 20110426
  Receipt Date: 20110425
  Transmission Date: 20111010
  Serious: No
  Sender: FDA-Public Use
  Company Number: US-ROXANE LABORATORIES, INC.-2011-RO-00291RO

PATIENT
  Sex: Female
  Weight: 49 kg

DRUGS (2)
  1. BIRTH CONTROL [Concomitant]
     Route: 048
  2. LITHIUM CARBONATE [Suspect]
     Indication: BIPOLAR II DISORDER
     Dosage: 625 MG
     Route: 048
     Dates: start: 20050101

REACTIONS (1)
  - URTICARIA [None]
